FAERS Safety Report 10763358 (Version 2)
Quarter: 2015Q1

REPORT INFORMATION
  Report Type: Spontaneous
  Country: CH (occurrence: CH)
  Receive Date: 20150204
  Receipt Date: 20150323
  Transmission Date: 20150721
  Serious: Yes (Other)
  Sender: FDA-Public Use
  Company Number: CH-GLAXOSMITHKLINE-CH2015GSK010995

PATIENT
  Sex: Female
  Weight: 70 kg

DRUGS (1)
  1. VENTOLIN [Suspect]
     Active Substance: ALBUTEROL SULFATE
     Indication: DYSPNOEA
     Dosage: 1.25 MG, Z
     Route: 055
     Dates: start: 20150126

REACTIONS (6)
  - Lip swelling [Recovered/Resolved]
  - Erythema [Recovered/Resolved]
  - Hyperventilation [Recovered/Resolved]
  - Angioedema [Recovered/Resolved]
  - Respiratory distress [Recovered/Resolved]
  - Dizziness [Recovered/Resolved]
